FAERS Safety Report 11341678 (Version 1)
Quarter: 2015Q3

REPORT INFORMATION
  Report Type: Spontaneous
  Country: US (occurrence: None)
  Receive Date: 20150803
  Receipt Date: 20150803
  Transmission Date: 20151125
  Serious: Yes (Other)
  Sender: FDA-Public Use
  Company Number: None

PATIENT
  Age: 53 Year
  Sex: Male
  Weight: 72.58 kg

DRUGS (1)
  1. LISINOPRIL 5 MG LUPIN [Suspect]
     Active Substance: LISINOPRIL
     Indication: MYOCARDIAL INFARCTION
     Route: 048
     Dates: start: 20150708, end: 20150709

REACTIONS (1)
  - Rash generalised [None]

NARRATIVE: CASE EVENT DATE: 20150709
